FAERS Safety Report 5377652-5 (Version None)
Quarter: 2007Q3

REPORT INFORMATION
  Report Type: 
  Country: None (occurrence: None)
  Receive Date: 20070703
  Receipt Date: 20070622
  Transmission Date: 20080115
  Serious: Yes (Other)
  Sender: FDA-Public Use
  Company Number: US-PFIZER INC-2007031185

PATIENT
  Age: 65 Year
  Sex: Female

DRUGS (4)
  1. GEODON [Suspect]
     Indication: BIPOLAR I DISORDER
  2. LITHIUM [Suspect]
     Dosage: TEXT:UNKNOWN
     Dates: start: 20070409
  3. XANAX [Concomitant]
  4. PROZAC [Concomitant]

REACTIONS (6)
  - AGITATION [None]
  - ANXIETY [None]
  - CONVULSION [None]
  - DIARRHOEA [None]
  - RESTLESSNESS [None]
  - TREMOR [None]
